FAERS Safety Report 9661093 (Version 2)
Quarter: 2013Q4

REPORT INFORMATION
  Report Type: Spontaneous
  Country: US (occurrence: US)
  Receive Date: 20131031
  Receipt Date: 20131107
  Transmission Date: 20140711
  Serious: Yes (Other)
  Sender: FDA-Public Use
  Company Number: US-TEVA-441610USA

PATIENT
  Age: 67 Year
  Sex: Female

DRUGS (11)
  1. CISPLATIN [Suspect]
     Indication: OVARIAN CANCER STAGE III
     Dosage: 20 MG/M2
     Route: 065
  2. IFOSFAMIDE [Interacting]
     Indication: OVARIAN CANCER STAGE III
     Dosage: 1.5 G/M2 DAILY OVER 90 MIN ON DAYS 1-4
     Route: 065
  3. IFOSFAMIDE [Interacting]
     Indication: OVARIAN CANCER STAGE III
     Dosage: 1G/M2 DAILY OVER 90 MIN ON DAYS 1-4
     Route: 065
  4. APREPITANT [Interacting]
     Indication: PREMEDICATION
     Dosage: 125MG
     Route: 065
  5. APREPITANT [Interacting]
     Dosage: 80MG EACH MORNING FOR 2 DAYS
     Route: 065
  6. MESNA [Concomitant]
     Indication: OVARIAN CANCER STAGE III
     Route: 065
  7. ONDANSETRON [Concomitant]
     Indication: PREMEDICATION
     Dosage: 32MG
     Route: 065
  8. ONDANSETRON [Concomitant]
     Route: 065
  9. DEXAMETHASONE [Concomitant]
     Indication: PREMEDICATION
     Dosage: 10MG
     Route: 065
  10. DEXAMETHASONE [Concomitant]
     Dosage: 8MG EVERY MORNING
     Route: 065
  11. METOCLOPRAMIDE [Concomitant]
     Route: 065

REACTIONS (4)
  - Coma [Recovered/Resolved]
  - Drug interaction [Recovered/Resolved]
  - Nausea [Unknown]
  - Vomiting [Recovered/Resolved]
